FAERS Safety Report 4565467-7 (Version None)
Quarter: 2005Q1

REPORT INFORMATION
  Report Type: 
  Country: None (occurrence: None)
  Receive Date: 20050126
  Receipt Date: 20050114
  Transmission Date: 20050727
  Serious: Yes (Disabling, Other)
  Sender: FDA-Public Use
  Company Number: 2005UW00752

PATIENT
  Sex: Female

DRUGS (2)
  1. SEROQUEL [Suspect]
     Dates: start: 20030823
  2. SERZONE [Suspect]

REACTIONS (5)
  - ANHEDONIA [None]
  - ANXIETY [None]
  - INJURY [None]
  - MEDICATION ERROR [None]
  - PAIN [None]
